FAERS Safety Report 6458727-6 (Version None)
Quarter: 2009Q4

REPORT INFORMATION
  Report Type: 
  Country: None (occurrence: None)
  Receive Date: 20091120
  Receipt Date: 20091106
  Transmission Date: 20100525
  Serious: Yes (Other)
  Sender: FDA-Public Use
  Company Number: AUR-APL-2009-01201

PATIENT
  Age: 81 Year
  Sex: Female
  Weight: 62 kg

DRUGS (5)
  1. TERBINAFINE HCL [Suspect]
     Indication: NAIL INFECTION
     Dosage: 125MG, PO
     Route: 048
     Dates: start: 20090301, end: 20090701
  2. BENDROFLUMETHIAZIDE 2.5MG [Concomitant]
  3. DOXAZOSIN 4MG [Concomitant]
  4. RABEPRAZOLE 20MG [Concomitant]
  5. WARFARIN SODIUM [Concomitant]

REACTIONS (2)
  - MUSCULOSKELETAL PAIN [None]
  - MUSCULOSKELETAL STIFFNESS [None]
